FAERS Safety Report 9758635 (Version 1)
Quarter: 2013Q4

REPORT INFORMATION
  Report Type: Spontaneous
  Country: US (occurrence: None)
  Receive Date: 20131216
  Receipt Date: 20131216
  Transmission Date: 20140711
  Serious: Yes (Hospitalization)
  Sender: FDA-Public Use
  Company Number: RB-52286-2013

PATIENT
  Age: 26 Year
  Sex: Male

DRUGS (1)
  1. SUBOXONE 8 MG [Suspect]
     Indication: DRUG DEPENDENCE
     Dosage: (16 MG, SUBOXONE FILM SUBLINGUAL) , (SUBOXONE FILM; TAPERED FROM 16 MG DAILY EVERY 3 DAYS TO 2 MG DA

REACTIONS (2)
  - Drug detoxification [None]
  - Drug withdrawal syndrome [None]
